FAERS Safety Report 7999534-2 (Version None)
Quarter: 2011Q4

REPORT INFORMATION
  Report Type: 
  Country: None (occurrence: None)
  Receive Date: 20111221
  Receipt Date: 20111215
  Transmission Date: 20120403
  Serious: Yes (Hospitalization)
  Sender: FDA-Public Use
  Company Number: US-PFIZER INC-2011273158

PATIENT
  Sex: Male
  Weight: 97.959 kg

DRUGS (2)
  1. CHANTIX [Suspect]
     Indication: SMOKING CESSATION THERAPY
     Dosage: UNK
     Route: 048
     Dates: start: 20110125, end: 20110218
  2. LISINOPRIL [Concomitant]
     Indication: BLOOD PRESSURE ABNORMAL
     Dosage: UNK, DAILY

REACTIONS (13)
  - ASTHENIA [None]
  - WEIGHT DECREASED [None]
  - DRUG INEFFECTIVE [None]
  - GASTROINTESTINAL PAIN [None]
  - VOMITING [None]
  - MALAISE [None]
  - ARTHROPATHY [None]
  - FLATULENCE [None]
  - DIZZINESS [None]
  - FOOD AVERSION [None]
  - GAIT DISTURBANCE [None]
  - DIARRHOEA [None]
  - HAEMATOCHEZIA [None]
